FAERS Safety Report 18204560 (Version 1)
Quarter: 2020Q3

REPORT INFORMATION
  Report Type: Spontaneous
  Country: US (occurrence: US)
  Receive Date: 20200827
  Receipt Date: 20200827
  Transmission Date: 20201103
  Serious: Yes (Hospitalization)
  Sender: FDA-Public Use
  Company Number: US-ASTRAZENECA-2020SF05980

PATIENT
  Sex: Female

DRUGS (4)
  1. ASA [Concomitant]
     Active Substance: ASPIRIN
  2. BRILINTA [Suspect]
     Active Substance: TICAGRELOR
     Indication: STENT PLACEMENT
     Dosage: 60.0MG UNKNOWN
     Route: 048
  3. INSULIN [Concomitant]
     Active Substance: INSULIN NOS
  4. BRILINTA [Suspect]
     Active Substance: TICAGRELOR
     Indication: STENT PLACEMENT
     Route: 048
     Dates: end: 20200430

REACTIONS (9)
  - Loss of consciousness [Unknown]
  - Gait disturbance [Unknown]
  - Headache [Unknown]
  - Spinal stenosis [Unknown]
  - Fall [Unknown]
  - Blood urine present [Unknown]
  - Malaise [Unknown]
  - Head injury [Unknown]
  - Subdural haemorrhage [Unknown]

NARRATIVE: CASE EVENT DATE: 202004
